FAERS Safety Report 10693569 (Version 1)
Quarter: 2015Q1

REPORT INFORMATION
  Report Type: Other
  Country: GB (occurrence: GB)
  Receive Date: 20150106
  Receipt Date: 20150106
  Transmission Date: 20150721
  Serious: Yes (Disabling)
  Sender: FDA-Public Use
  Company Number: GB-MYLANLABS-2015M1000029

PATIENT

DRUGS (5)
  1. QUETIAPINE [Concomitant]
     Active Substance: QUETIAPINE
     Dosage: 800 MG, QD (AT NIGHT)
  2. LAMOTRIGINE. [Suspect]
     Active Substance: LAMOTRIGINE
     Indication: BIPOLAR I DISORDER
     Dosage: 25 MG, QOD
     Route: 048
     Dates: start: 20140723, end: 20140730
  3. DIAZEPAM. [Concomitant]
     Active Substance: DIAZEPAM
     Dosage: 9 MG, QD (AT NIGHT)
  4. SUBUTEX [Concomitant]
     Active Substance: BUPRENORPHINE HYDROCHLORIDE
  5. EPILIM [Concomitant]
     Active Substance: VALPROATE SODIUM
     Dosage: 200 MG, BID

REACTIONS (7)
  - Tachyphrenia [Recovered/Resolved]
  - Hypomania [Recovered/Resolved]
  - Psychomotor hyperactivity [Recovered/Resolved]
  - Insomnia [Recovered/Resolved]
  - Paranoia [Recovered/Resolved]
  - Anger [Recovered/Resolved]
  - Compulsive shopping [Recovered/Resolved]

NARRATIVE: CASE EVENT DATE: 20140726
